FAERS Safety Report 6930809-1 (Version None)
Quarter: 2010Q3

REPORT INFORMATION
  Report Type: 
  Country: None (occurrence: None)
  Receive Date: 20100818
  Receipt Date: 20100809
  Transmission Date: 20110219
  Serious: Yes (Life-Threatening)
  Sender: FDA-Public Use
  Company Number: FR-ASTRAZENECA-2010SE37098

PATIENT
  Age: 56 Year
  Sex: Female

DRUGS (8)
  1. NEXIUM [Suspect]
     Route: 042
     Dates: start: 20100619, end: 20100623
  2. CEFTRIAXONE PANPHARMA [Suspect]
     Indication: RENAL ABSCESS
     Route: 042
     Dates: start: 20100619, end: 20100628
  3. GENTAMICIN [Suspect]
     Indication: RENAL ABSCESS
     Route: 042
     Dates: start: 20100619, end: 20100619
  4. SEROPLEX [Concomitant]
     Route: 048
  5. LEXOMIL [Concomitant]
     Route: 048
  6. EQUANIL [Concomitant]
     Route: 048
  7. HAVLANE [Concomitant]
     Route: 048
  8. ACETAMINOPHEN W/ PROPOXYPHENE HCL [Concomitant]
     Route: 048

REACTIONS (1)
  - HEPATITIS FULMINANT [None]
